FAERS Safety Report 26192795 (Version 1)
Quarter: 2025Q4

REPORT INFORMATION
  Report Type: Spontaneous
  Country: EU (occurrence: EU)
  Receive Date: 20251223
  Receipt Date: 20251223
  Transmission Date: 20260118
  Serious: Yes (Hospitalization)
  Sender: RECKITT BENCKISER
  Company Number: None

PATIENT

DRUGS (3)
  1. SUBUTEX [Suspect]
     Active Substance: BUPRENORPHINE HYDROCHLORIDE
     Indication: Product used for unknown indication
     Dosage: 1 UNK, UNKNOWN
     Route: 042
     Dates: start: 20250902, end: 20250902
  2. SUBUTEX [Suspect]
     Active Substance: BUPRENORPHINE HYDROCHLORIDE
     Dosage: 1 UNK, UNKNOWN
     Route: 042
     Dates: start: 20251127, end: 20251127
  3. SUBUTEX [Suspect]
     Active Substance: BUPRENORPHINE HYDROCHLORIDE
     Dosage: 4 MILLIGRAM, UNKNOWN (LONG COURSE)
     Route: 060

REACTIONS (7)
  - Venous haemorrhage [Recovered/Resolved]
  - Blood loss anaemia [Not Recovered/Not Resolved]
  - Tachycardia [Recovered/Resolved]
  - Hypotension [Not Recovered/Not Resolved]
  - Drug use disorder [Not Recovered/Not Resolved]
  - Haemorrhage [Recovered/Resolved]
  - Intentional product use issue [Recovered/Resolved]

NARRATIVE: CASE EVENT DATE: 20250902
